FAERS Safety Report 11121991 (Version 1)
Quarter: 2015Q2

REPORT INFORMATION
  Report Type: Spontaneous
  Country: US (occurrence: US)
  Receive Date: 20150519
  Receipt Date: 20150519
  Transmission Date: 20150821
  Serious: Yes (Other)
  Sender: FDA-Public Use
  Company Number: US-HOSPIRA-2860124

PATIENT
  Age: 17 Year
  Sex: Female

DRUGS (1)
  1. KETOROLAC [Suspect]
     Active Substance: KETOROLAC\KETOROLAC TROMETHAMINE
     Indication: MIGRAINE
     Dosage: NOT REPORTED
     Route: 030
     Dates: start: 201504

REACTIONS (3)
  - Rash [Recovered/Resolved]
  - Product quality issue [Recovered/Resolved]
  - Product contamination physical [Recovered/Resolved]

NARRATIVE: CASE EVENT DATE: 201504
